FAERS Safety Report 15320928 (Version 1)
Quarter: 2018Q3

REPORT INFORMATION
  Report Type: Spontaneous
  Country: US (occurrence: US)
  Receive Date: 20180821
  Receipt Date: 20180821
  Transmission Date: 20181010
  Serious: Yes (Hospitalization)
  Sender: FDA-Public Use
  Company Number: None

PATIENT
  Age: 69 Year
  Sex: Female
  Weight: 45.81 kg

DRUGS (3)
  1. METRONIDAZOL 500MG TAB [Suspect]
     Active Substance: METRONIDAZOLE
     Indication: DIVERTICULITIS
     Dosage: ?          QUANTITY:2 PILLS;?
     Route: 048
     Dates: start: 20180615, end: 20180624
  2. ELIQUIS [Concomitant]
     Active Substance: APIXABAN
  3. CIPROFLOXACIN 500MG TAB [Suspect]
     Active Substance: CIPROFLOXACIN
     Indication: DIVERTICULITIS
     Dosage: ?          QUANTITY:3 PILLS;?
     Route: 048
     Dates: start: 20180615, end: 20180624

REACTIONS (10)
  - Dehydration [None]
  - Tremor [None]
  - Drug ineffective [None]
  - Malaise [None]
  - Oral discomfort [None]
  - Tongue discomfort [None]
  - Heart rate increased [None]
  - Fatigue [None]
  - Throat irritation [None]
  - Muscle spasms [None]

NARRATIVE: CASE EVENT DATE: 20180621
